FAERS Safety Report 4515202-3 (Version None)
Quarter: 2004Q4

REPORT INFORMATION
  Report Type: 
  Country: None (occurrence: None)
  Receive Date: 20041129
  Receipt Date: 20041129
  Transmission Date: 20050328
  Serious: Yes (Other)
  Sender: FDA-Public Use
  Company Number: None

PATIENT
  Age: 50 Year
  Sex: Male
  Weight: 120.2032 kg

DRUGS (1)
  1. CRESTOR [Suspect]
     Dosage: 10 MG PER DAY
     Dates: start: 20040301, end: 20041001

REACTIONS (2)
  - ARTHRALGIA [None]
  - JOINT SPRAIN [None]
